FAERS Safety Report 15131175 (Version 2)
Quarter: 2018Q3

REPORT INFORMATION
  Report Type: Spontaneous
  Country: GB (occurrence: GB)
  Receive Date: 20180711
  Receipt Date: 20180823
  Transmission Date: 20181010
  Serious: Yes (Other)
  Sender: FDA-Public Use
  Company Number: GB-ALLERGAN-1834673US

PATIENT
  Age: 24 Year
  Sex: Male

DRUGS (2)
  1. OZURDEX [Suspect]
     Active Substance: DEXAMETHASONE
     Indication: CYSTOID MACULAR OEDEMA
     Dosage: 0.7 MG, SINGLE
     Route: 031
     Dates: start: 201805, end: 201805
  2. OZURDEX [Suspect]
     Active Substance: DEXAMETHASONE
     Indication: RETINITIS PIGMENTOSA

REACTIONS (4)
  - Off label use [Unknown]
  - Intraocular pressure increased [Unknown]
  - Complication of device insertion [Not Recovered/Not Resolved]
  - Product administered at inappropriate site [Unknown]

NARRATIVE: CASE EVENT DATE: 20180504
